FAERS Safety Report 8319308-2 (Version None)
Quarter: 2012Q2

REPORT INFORMATION
  Report Type: 
  Country: None (occurrence: None)
  Receive Date: 20120427
  Receipt Date: 20120420
  Transmission Date: 20120825
  Serious: Yes (Hospitalization)
  Sender: FDA-Public Use
  Company Number: US-BAYER-2011-040689

PATIENT
  Age: 30 Year
  Sex: Female
  Weight: 65 kg

DRUGS (11)
  1. YASMIN [Suspect]
     Indication: ORAL CONTRACEPTION
     Dosage: UNK
     Dates: start: 20060126, end: 20080701
  2. NEXIUM [Concomitant]
     Route: 048
  3. ZYRTEC [Concomitant]
     Route: 048
  4. KENALOG [Concomitant]
     Indication: NERVE BLOCK
     Dosage: UNK
     Dates: start: 20090318
  5. PREDNISONE [Concomitant]
  6. YASMIN [Suspect]
     Indication: ACNE
  7. EXCEDRIN P.M. [DIPHENHYDRAMINE CITRATE,PARACETAMOL] [Concomitant]
     Route: 048
  8. CORTISONE ACETATE [Concomitant]
     Indication: HEADACHE
  9. DROSPIRENONE AND ETHINYL ESTRADIOL [Suspect]
     Indication: ACNE
  10. IBUPROFEN [Concomitant]
     Indication: HEADACHE
     Dosage: 800 MG, TID
     Dates: start: 20090318, end: 20090327
  11. DROSPIRENONE AND ETHINYL ESTRADIOL [Suspect]
     Indication: ORAL CONTRACEPTION
     Dosage: UNK
     Dates: start: 20080708, end: 20090328

REACTIONS (17)
  - EMOTIONAL DISTRESS [None]
  - HYPOAESTHESIA [None]
  - MEMORY IMPAIRMENT [None]
  - PAIN [None]
  - MOBILITY DECREASED [None]
  - HYPOAESTHESIA ORAL [None]
  - DYSARTHRIA [None]
  - MUSCULAR WEAKNESS [None]
  - GENERAL PHYSICAL HEALTH DETERIORATION [None]
  - MONOPLEGIA [None]
  - VIITH NERVE PARALYSIS [None]
  - ISCHAEMIC STROKE [None]
  - INJURY [None]
  - HEADACHE [None]
  - ANXIETY [None]
  - PARAESTHESIA [None]
  - DISTURBANCE IN ATTENTION [None]
